FAERS Safety Report 6257092-7 (Version None)
Quarter: 2009Q3

REPORT INFORMATION
  Report Type: 
  Country: None (occurrence: None)
  Receive Date: 20090706
  Receipt Date: 20090624
  Transmission Date: 20100115
  Serious: Yes (Hospitalization)
  Sender: FDA-Public Use
  Company Number: B0580334A

PATIENT
  Sex: Female

DRUGS (9)
  1. DEROXAT [Suspect]
     Indication: DEPRESSION
     Dosage: 1UNIT PER DAY
     Route: 048
  2. PREVISCAN [Suspect]
     Indication: PROPHYLAXIS
     Dosage: .25UNIT PER DAY
     Route: 048
     Dates: end: 20090301
  3. CORDARONE [Suspect]
     Indication: ARRHYTHMIA
     Dosage: 1UNIT ALTERNATE DAYS
     Route: 048
  4. TAGAMET [Concomitant]
     Indication: GASTROOESOPHAGEAL REFLUX DISEASE
     Dosage: 200MG PER DAY
     Route: 048
     Dates: end: 20090309
  5. VASTAREL [Concomitant]
     Indication: VERTIGO
     Dosage: 35MG TWICE PER DAY
     Route: 048
     Dates: end: 20090309
  6. TAREG [Concomitant]
     Indication: HYPERTENSION
     Dosage: 40MG PER DAY
     Route: 048
     Dates: end: 20090314
  7. CARDENSIEL [Concomitant]
     Route: 065
  8. LASIX [Concomitant]
     Route: 065
  9. HEMIGOXINE [Concomitant]
     Route: 065

REACTIONS (12)
  - BACK PAIN [None]
  - CARDIAC FAILURE [None]
  - CONFUSIONAL STATE [None]
  - DIARRHOEA [None]
  - DRUG INTERACTION [None]
  - FACE INJURY [None]
  - FALL [None]
  - HAEMATOMA [None]
  - INTERNATIONAL NORMALISED RATIO INCREASED [None]
  - OVERDOSE [None]
  - RENAL FAILURE [None]
  - VOMITING [None]
